FAERS Safety Report 6406543-3 (Version None)
Quarter: 2009Q4

REPORT INFORMATION
  Report Type: 
  Country: None (occurrence: None)
  Receive Date: 20091019
  Receipt Date: 20091009
  Transmission Date: 20100525
  Serious: Yes (Hospitalization)
  Sender: FDA-Public Use
  Company Number: DE-AMGEN-US352467

PATIENT
  Sex: Female
  Weight: 65 kg

DRUGS (4)
  1. ENBREL [Suspect]
     Indication: RHEUMATOID ARTHRITIS
     Route: 058
     Dates: start: 20080510
  2. PREDNISOLONE [Suspect]
     Indication: RHEUMATOID ARTHRITIS
     Dosage: 7.5MG/D, DECREASED TO 5MG/D IN JUN-08, TO 2MG/D IN NOV-08, INCREASED TO 4MG/D IN MAR-09
     Route: 048
     Dates: start: 20070401
  3. VOLTAREN [Concomitant]
     Indication: RHEUMATOID ARTHRITIS
     Route: 048
     Dates: start: 20061201
  4. METEX [Concomitant]
     Indication: RHEUMATOID ARTHRITIS
     Route: 048
     Dates: start: 20080501

REACTIONS (1)
  - TENDON RUPTURE [None]
